FAERS Safety Report 17668161 (Version 1)
Quarter: 2020Q2

REPORT INFORMATION
  Report Type: Spontaneous
  Country: US (occurrence: US)
  Receive Date: 20200414
  Receipt Date: 20200414
  Transmission Date: 20200713
  Serious: Yes (Life-Threatening, Hospitalization, Other)
  Sender: FDA-Public Use
  Company Number: US-AUROBINDO-AUR-APL-2020-016849

PATIENT
  Age: 85 Year
  Sex: Female

DRUGS (2)
  1. EPINEPHRINE. [Suspect]
     Active Substance: EPINEPHRINE
     Indication: CARDIAC ARREST
     Dosage: UNK
     Route: 042
  2. LIDOCAINE HYDROCHLORIDE INJECTION USP (AMPULES) 1%(10MG/ML) [Suspect]
     Active Substance: LIDOCAINE HYDROCHLORIDE
     Indication: ANAESTHESIA
     Dosage: UNK, 50CC
     Route: 058

REACTIONS (8)
  - Stress cardiomyopathy [Recovering/Resolving]
  - Ventricular hypokinesia [Recovering/Resolving]
  - Local anaesthetic systemic toxicity [Unknown]
  - Pulmonary oedema [Unknown]
  - Cardiac arrest [Recovered/Resolved]
  - Left ventricular dysfunction [Recovering/Resolving]
  - Acute respiratory distress syndrome [Unknown]
  - Coronary artery disease [Recovering/Resolving]
